FAERS Safety Report 16944594 (Version 2)
Quarter: 2019Q4

REPORT INFORMATION
  Report Type: Spontaneous
  Country: US (occurrence: US)
  Receive Date: 20191022
  Receipt Date: 20191029
  Transmission Date: 20200122
  Serious: Yes (Disabling, Other)
  Sender: FDA-Public Use
  Company Number: US-ADVANZ PHARMA-201910001270

PATIENT

DRUGS (3)
  1. TAXOTERE [Suspect]
     Active Substance: DOCETAXEL
     Indication: INVASIVE DUCTAL BREAST CARCINOMA
     Dosage: 4 CYCLICAL
     Route: 065
  2. ENDOXAN [Concomitant]
     Active Substance: CYCLOPHOSPHAMIDE
     Dosage: 4 CYCLICAL
  3. HYDROXYCHLOROQUINE [Suspect]
     Active Substance: HYDROXYCHLOROQUINE
     Indication: RHEUMATOID ARTHRITIS
     Dosage: 200 MG, QD
     Route: 065

REACTIONS (7)
  - Maculopathy [Recovering/Resolving]
  - Cataract nuclear [Unknown]
  - Macular degeneration [Recovering/Resolving]
  - Blindness [Recovering/Resolving]
  - Vision blurred [Recovering/Resolving]
  - Macular oedema [Recovering/Resolving]
  - Retinal thickening [Recovering/Resolving]
